FAERS Safety Report 12984021 (Version 1)
Quarter: 2016Q4

REPORT INFORMATION
  Report Type: Spontaneous
  Country: AT (occurrence: AT)
  Receive Date: 20161129
  Receipt Date: 20161129
  Transmission Date: 20170207
  Serious: Yes (Hospitalization)
  Sender: FDA-Public Use
  Company Number: AT-ABBVIE-16P-009-1644559-00

PATIENT
  Age: 62 Year
  Sex: Male

DRUGS (2)
  1. DUODOPA [Suspect]
     Active Substance: CARBIDOPA\LEVODOPA
     Indication: PARKINSON^S DISEASE
     Dosage: 16 H THERAPY: MD: 9.5 ML, CR:4.9 ML/H, ED: 1.7 ML
     Route: 050
     Dates: start: 20100518
  2. DUODOPA [Suspect]
     Active Substance: CARBIDOPA\LEVODOPA
     Dosage: 16 H THERAPY:MD: 10.0 ML, CR:4.9 ML/H, ED: 1.7 ML
     Route: 050

REACTIONS (7)
  - Hyperkinesia [Unknown]
  - Device issue [Unknown]
  - Device breakage [Unknown]
  - Agitation [Unknown]
  - Rib fracture [Unknown]
  - Stoma site hypergranulation [Not Recovered/Not Resolved]
  - Fall [Unknown]

NARRATIVE: CASE EVENT DATE: 20161118
